FAERS Safety Report 10012240 (Version 3)
Quarter: 2014Q2

REPORT INFORMATION
  Report Type: Spontaneous
  Country: SE (occurrence: SE)
  Receive Date: 20140314
  Receipt Date: 20140529
  Transmission Date: 20141212
  Serious: Yes (Hospitalization, Disabling, Other)
  Sender: FDA-Public Use
  Company Number: 2014SP000815

PATIENT
  Age: 56 Year
  Sex: Female
  Weight: 67.5 kg

DRUGS (2)
  1. METHOTREXATE [Suspect]
     Indication: PRODUCT USED FOR UNKNOWN INDICATION
  2. PARACETAMOL [Concomitant]
     Indication: PAIN
     Route: 048
     Dates: start: 20110110

REACTIONS (4)
  - Ovarian cancer [Not Recovered/Not Resolved]
  - Metastases to peritoneum [Not Recovered/Not Resolved]
  - Metastases to liver [Not Recovered/Not Resolved]
  - Abdominal pain [Not Recovered/Not Resolved]
